FAERS Safety Report 14937979 (Version 1)
Quarter: 2018Q2

REPORT INFORMATION
  Report Type: Spontaneous
  Country: US (occurrence: US)
  Receive Date: 20180525
  Receipt Date: 20180525
  Transmission Date: 20180711
  Serious: Yes (Life-Threatening, Other)
  Sender: FDA-Public Use
  Company Number: US-BAYER-2018-096462

PATIENT
  Age: 64 Year
  Sex: Female

DRUGS (1)
  1. ACETYLSALICYLIC ACID({=100 MG) [Suspect]
     Active Substance: ASPIRIN

REACTIONS (8)
  - Respiratory alkalosis [None]
  - Tachypnoea [None]
  - Overdose [None]
  - Acute respiratory distress syndrome [None]
  - Shock [Recovered/Resolved]
  - Metabolic acidosis [None]
  - Encephalopathy [None]
  - Tachycardia [None]
